FAERS Safety Report 8762144 (Version 2)
Quarter: 2012Q4

REPORT INFORMATION
  Report Type: 
  Country: US (occurrence: US)
  Receive Date: 20120830
  Receipt Date: 20121129
  Transmission Date: 20130627
  Serious: Yes (Hospitalization)
  Sender: FDA-Public Use
  Company Number: US-ELI_LILLY_AND_COMPANY-US201208006972

PATIENT
  Sex: Female
  Weight: 77.55 kg

DRUGS (2)
  1. ADCIRCA [Suspect]
     Indication: PORTOPULMONARY HYPERTENSION
     Dosage: 40 DF, each morning
     Dates: start: 201202
  2. TYVASO [Concomitant]
     Indication: COR PULMONALE CHRONIC
     Dosage: 0.6mg/ml 3-12 breaths, qid
     Route: 055
     Dates: start: 20120216

REACTIONS (5)
  - Malaise [Recovering/Resolving]
  - Oedema [Recovering/Resolving]
  - Atelectasis [Recovering/Resolving]
  - Fatigue [Recovering/Resolving]
  - Dyspnoea [Recovering/Resolving]
